FAERS Safety Report 6840884-0 (Version None)
Quarter: 2010Q3

REPORT INFORMATION
  Report Type: 
  Country: None (occurrence: None)
  Receive Date: 20100714
  Receipt Date: 20070405
  Transmission Date: 20110219
  Serious: No
  Sender: FDA-Public Use
  Company Number: US-PFIZER INC-2006138175

PATIENT
  Sex: Male
  Weight: 87.54 kg

DRUGS (4)
  1. CHANTIX [Suspect]
     Indication: SMOKING CESSATION THERAPY
     Route: 048
     Dates: start: 20061020, end: 20061101
  2. ZIAC [Concomitant]
  3. COZAAR [Concomitant]
     Indication: HYPERTENSION
     Dates: start: 20060901
  4. XANAX [Concomitant]

REACTIONS (5)
  - MUSCLE SPASMS [None]
  - MUSCULAR WEAKNESS [None]
  - MYALGIA [None]
  - NAUSEA [None]
  - NERVOUSNESS [None]
